FAERS Safety Report 15969900 (Version 1)
Quarter: 2019Q1

REPORT INFORMATION
  Report Type: Report from Study
  Country: US (occurrence: US)
  Receive Date: 20190215
  Receipt Date: 20190215
  Transmission Date: 20190418
  Serious: Yes (Hospitalization, Other)
  Sender: FDA-Public Use
  Company Number: US-AMAG PHARMACEUTICALS, INC.-AMAG201801058

PATIENT

DRUGS (5)
  1. PRENATAL VITAMINS [Concomitant]
     Active Substance: VITAMINS
     Indication: PREGNANCY
     Dosage: 1 UNITS, CAP, QD
     Route: 048
     Dates: start: 20170919
  2. MAKENA [Suspect]
     Active Substance: HYDROXYPROGESTERONE CAPROATE
     Indication: PREMATURE DELIVERY
     Dosage: 250 MG/ML, WEEKLY
     Route: 030
     Dates: start: 20171106, end: 20180226
  3. PHENERGAN [Concomitant]
     Active Substance: PROMETHAZINE HYDROCHLORIDE
     Indication: VOMITING
  4. PHENERGAN [Concomitant]
     Active Substance: PROMETHAZINE HYDROCHLORIDE
     Indication: NAUSEA
     Dosage: 25 MG, TAB, Q6H PRN
     Route: 048
     Dates: start: 20171003
  5. PRENATAL [Concomitant]
     Active Substance: VITAMINS
     Indication: PREGNANCY
     Dosage: 1 UNITS, QD
     Route: 048
     Dates: start: 20170919

REACTIONS (3)
  - Premature delivery [Recovered/Resolved]
  - Off label use [Unknown]
  - Breech presentation [Recovered/Resolved]

NARRATIVE: CASE EVENT DATE: 20171106
